FAERS Safety Report 8193658-5 (Version None)
Quarter: 2012Q1

REPORT INFORMATION
  Report Type: 
  Country: None (occurrence: None)
  Receive Date: 20120308
  Receipt Date: 20120228
  Transmission Date: 20120608
  Serious: Yes (Hospitalization)
  Sender: FDA-Public Use
  Company Number: US-JNJFOC-20120210189

PATIENT
  Sex: Male
  Weight: 48.5 kg

DRUGS (9)
  1. REMICADE [Suspect]
     Indication: CROHN'S DISEASE
     Route: 042
     Dates: start: 20050501, end: 20080101
  2. VITAMIN D W/ CALCIUM [Concomitant]
  3. HUMIRA [Concomitant]
     Dates: start: 20080401
  4. FISH OIL [Concomitant]
  5. ANTIBIOTICS [Concomitant]
     Indication: INFLAMMATORY BOWEL DISEASE
  6. GROWTH HORMONE [Concomitant]
  7. MESALAMINE [Concomitant]
     Route: 048
  8. FOLIC ACID [Concomitant]
  9. MECLIZINE HYDROCHLORIDE [Concomitant]

REACTIONS (1)
  - CROHN'S DISEASE [None]
